FAERS Safety Report 5591130-X (Version None)
Quarter: 2008Q1

REPORT INFORMATION
  Report Type: 
  Country: None (occurrence: None)
  Receive Date: 20080110
  Receipt Date: 20080110
  Transmission Date: 20080703
  Serious: Yes (Hospitalization)
  Sender: FDA-Public Use
  Company Number: None

PATIENT
  Sex: Male
  Weight: 131 kg

DRUGS (10)
  1. CYTARABINE [Suspect]
     Dosage: 4800 MG
  2. DEXAMETHASONE TAB [Suspect]
     Dosage: 100 MG
  3. ETOPOSIDE [Suspect]
     Dosage: 380 MG
  4. G-CSF (FILGRASTIM, AMGEN) [Suspect]
     Dosage: 10710 MG
  5. IFOSFAMIDE [Suspect]
     Dosage: 9500 MG
  6. LEUCOVORIN CALCIUM [Suspect]
     Dosage: 150 MG
  7. MESNA [Suspect]
     Dosage: 7500 MG
  8. METHOTREXATE [Suspect]
     Dosage: 3390 MG
  9. RITUXIMAB (MOAB C2B8 ANTI CD20, CHIMERIC) [Suspect]
     Dosage: 1800 MG
  10. VINCRISTINE SULFATE [Suspect]
     Dosage: 2 MG

REACTIONS (31)
  - ATELECTASIS [None]
  - BACILLUS INFECTION [None]
  - BACTERIAL INFECTION [None]
  - BRADYCARDIA [None]
  - BUNDLE BRANCH BLOCK [None]
  - BUNDLE BRANCH BLOCK RIGHT [None]
  - CANDIDURIA [None]
  - CARDIOMEGALY [None]
  - CATHETER RELATED INFECTION [None]
  - CHOLELITHIASIS [None]
  - ENTEROCOCCAL INFECTION [None]
  - FUNGAL OESOPHAGITIS [None]
  - GENERALISED OEDEMA [None]
  - HYPERTENSION [None]
  - HYPOTENSION [None]
  - IMPAIRED GASTRIC EMPTYING [None]
  - INTESTINAL ULCER [None]
  - LARGE INTESTINAL HAEMORRHAGE [None]
  - LIVER FUNCTION TEST ABNORMAL [None]
  - LOWER GASTROINTESTINAL HAEMORRHAGE [None]
  - LUNG CONSOLIDATION [None]
  - MUCOSAL INFLAMMATION [None]
  - NERVOUS SYSTEM DISORDER [None]
  - OESOPHAGEAL HAEMORRHAGE [None]
  - PNEUMONIA KLEBSIELLA [None]
  - PNEUMOTHORAX [None]
  - PSEUDOMONAS INFECTION [None]
  - SINUS TACHYCARDIA [None]
  - STAPHYLOCOCCAL INFECTION [None]
  - SYNCOPE [None]
  - TACHYCARDIA [None]
